FAERS Safety Report 6639323-4 (Version None)
Quarter: 2010Q1

REPORT INFORMATION
  Report Type: 
  Country: None (occurrence: None)
  Receive Date: 20100315
  Receipt Date: 20100309
  Transmission Date: 20100710
  Serious: Yes (Hospitalization)
  Sender: FDA-Public Use
  Company Number: CIP09001033

PATIENT
  Age: 77 Year
  Sex: Female
  Weight: 56.9 kg

DRUGS (22)
  1. ACTONEL [Suspect]
     Indication: BACK PAIN
     Dosage: 35 MG ONCE WEEKLY, ORAL
     Route: 048
     Dates: start: 20080514, end: 20090226
  2. PLACEBO INJECTION [Suspect]
     Indication: BACK PAIN
     Dosage: 20 UG DAILY, SUBCUTANEOUS
     Route: 058
     Dates: start: 20080513, end: 20090303
  3. LEVOTHYROXINE SODIUM [Concomitant]
  4. AMBIEN [Concomitant]
  5. FUROSEMIDE [Concomitant]
  6. COMBIVENT /01033501/ (IPRATROPIUM BROMIDE, SALBUTAMOL) [Concomitant]
  7. ALBUTEROL /00139501/) (SALBUTAMOL) [Concomitant]
  8. ADVAIR DISKUS 100/50 [Concomitant]
  9. OXYGEN (OXYGEN) [Concomitant]
  10. CARTIA XT                /00489701/) [Concomitant]
  11. WARFARIN SODIUM [Concomitant]
  12. TOPROL-XL [Concomitant]
  13. ACIDOPHILUS (LACTOBACILLUS ACIDOPHILUS) [Concomitant]
  14. ALPRAZOLAM [Concomitant]
  15. NITROQUICK (GLYCERYL TRINITRATE) [Concomitant]
  16. ASPIRIN [Concomitant]
  17. AMIODARONE HCL [Concomitant]
  18. CRESTOR [Concomitant]
  19. FERROUS SULFATE TAB [Concomitant]
  20. MULTIVITAMIN /00831701/ (VITAMINS NOS) [Concomitant]
  21. MIRALAX [Concomitant]
  22. BENADRYL ALLERGY SINUS HEADACHE (DIPHENHYDRAMINE HYDROCHLORIDE, PARACE [Concomitant]

REACTIONS (13)
  - ANAEMIA [None]
  - ASTHENIA [None]
  - ATRIAL FIBRILLATION [None]
  - BRADYARRHYTHMIA [None]
  - DIASTOLIC DYSFUNCTION [None]
  - FATIGUE [None]
  - GASTROINTESTINAL HAEMORRHAGE [None]
  - HAEMORRHAGE [None]
  - OCCULT BLOOD POSITIVE [None]
  - PULMONARY HYPERTENSION [None]
  - PYREXIA [None]
  - THORACIC VERTEBRAL FRACTURE [None]
  - VIRAL INFECTION [None]
